FAERS Safety Report 15533945 (Version 4)
Quarter: 2022Q4

REPORT INFORMATION
  Report Type: Spontaneous
  Country: US (occurrence: None)
  Receive Date: 20181019
  Receipt Date: 20221121
  Transmission Date: 20230113
  Serious: Yes (Hospitalization, Other)
  Sender: FDA-Public Use
  Company Number: 2018SF32569

PATIENT
  Age: 22743 Day
  Sex: Male
  Weight: 89.8 kg

DRUGS (33)
  1. NEXIUM [Suspect]
     Active Substance: ESOMEPRAZOLE MAGNESIUM
     Indication: Gastrooesophageal reflux disease
     Route: 048
     Dates: start: 20051127, end: 20091030
  2. NEXIUM [Suspect]
     Active Substance: ESOMEPRAZOLE MAGNESIUM
     Indication: Gastrooesophageal reflux disease
     Route: 048
     Dates: start: 2010, end: 2014
  3. NEXIUM [Suspect]
     Active Substance: ESOMEPRAZOLE MAGNESIUM
     Indication: Gastrooesophageal reflux disease
     Route: 048
     Dates: start: 20131028
  4. PREVACID [Suspect]
     Active Substance: LANSOPRAZOLE
     Indication: Gastrooesophageal reflux disease
     Route: 065
     Dates: start: 20051127, end: 20091030
  5. PREVACID [Suspect]
     Active Substance: LANSOPRAZOLE
     Indication: Gastrooesophageal reflux disease
     Route: 065
     Dates: start: 2005, end: 2009
  6. PREVACID [Suspect]
     Active Substance: LANSOPRAZOLE
     Indication: Gastrooesophageal reflux disease
     Route: 048
     Dates: start: 20051127
  7. PROTONIX [Suspect]
     Active Substance: PANTOPRAZOLE SODIUM
     Route: 065
     Dates: start: 20051127, end: 20091030
  8. PROTONIX [Suspect]
     Active Substance: PANTOPRAZOLE SODIUM
     Route: 048
     Dates: start: 20170127
  9. TUMS [Concomitant]
     Active Substance: CALCIUM CARBONATE
  10. BACLOFEN [Concomitant]
     Active Substance: BACLOFEN
  11. CARVEDILOL [Concomitant]
     Active Substance: CARVEDILOL
  12. CEPHALEXIN [Concomitant]
     Active Substance: CEPHALEXIN
  13. GLYCYRRHIZIC ACID/SULFAMETHOXAZOLE/AMINOCAPROIC ACID/CHLORPHENAMINE [Concomitant]
  14. OMEPRAZOLE [Concomitant]
     Active Substance: OMEPRAZOLE
  15. LANTUS SOLOSTAR [Concomitant]
     Active Substance: INSULIN GLARGINE
  16. NYSTOP [Concomitant]
     Active Substance: NYSTATIN
  17. MUPIROCIN [Concomitant]
     Active Substance: MUPIROCIN
  18. AMLODIPINE BESYLATE [Concomitant]
     Active Substance: AMLODIPINE BESYLATE
  19. AMOXICILLIN [Concomitant]
     Active Substance: AMOXICILLIN
  20. NOVOLOG [Concomitant]
     Active Substance: INSULIN ASPART
  21. DOXYCYCLINE HYCLATE [Concomitant]
     Active Substance: DOXYCYCLINE HYCLATE
  22. BENZONATATE [Concomitant]
     Active Substance: BENZONATATE
  23. ACETAMINOPHEN\OXYCODONE HYDROCHLORIDE [Concomitant]
     Active Substance: ACETAMINOPHEN\OXYCODONE HYDROCHLORIDE
  24. AZITHROMYCIN [Concomitant]
     Active Substance: AZITHROMYCIN
  25. FUROSEMIDE [Concomitant]
     Active Substance: FUROSEMIDE
  26. SUCRALFATE [Concomitant]
     Active Substance: SUCRALFATE
  27. LEVOFLOXACIN [Concomitant]
     Active Substance: LEVOFLOXACIN
  28. FAMOTIDINE [Concomitant]
     Active Substance: FAMOTIDINE
  29. DIOVAN [Concomitant]
     Active Substance: VALSARTAN
  30. SIMVASTATIN [Concomitant]
     Active Substance: SIMVASTATIN
  31. CARISOPRODOL [Concomitant]
     Active Substance: CARISOPRODOL
  32. CELEBREX [Concomitant]
     Active Substance: CELECOXIB
  33. TOPIRAMATE [Concomitant]
     Active Substance: TOPIRAMATE

REACTIONS (5)
  - Chronic kidney disease [Not Recovered/Not Resolved]
  - Renal failure [Not Recovered/Not Resolved]
  - End stage renal disease [Unknown]
  - Nephrogenic anaemia [Unknown]
  - Acute kidney injury [Unknown]

NARRATIVE: CASE EVENT DATE: 20131202
